FAERS Safety Report 15625843 (Version 1)
Quarter: 2018Q4

REPORT INFORMATION
  Report Type: Spontaneous
  Country: US (occurrence: US)
  Receive Date: 20181115
  Receipt Date: 20181115
  Transmission Date: 20190205
  Serious: Yes (Disabling, Other)
  Sender: FDA-Public Use
  Company Number: None

PATIENT
  Age: 68 Year
  Sex: Female
  Weight: 90 kg

DRUGS (6)
  1. SYMBICORT [Concomitant]
     Active Substance: BUDESONIDE\FORMOTEROL FUMARATE DIHYDRATE
  2. SYNTHROID [Concomitant]
     Active Substance: LEVOTHYROXINE SODIUM
  3. ALBUTEROL. [Concomitant]
     Active Substance: ALBUTEROL
  4. LEVOTHYROXIN [Suspect]
     Active Substance: LEVOTHYROXINE
     Indication: HYPOTHYROIDISM
     Dosage: ?          QUANTITY:1 TABLET(S);?
     Route: 048
     Dates: start: 20180808, end: 20181008
  5. LOSARTAN. [Concomitant]
     Active Substance: LOSARTAN
  6. CPAP [Concomitant]
     Active Substance: DEVICE

REACTIONS (4)
  - Drug ineffective [None]
  - Product substitution issue [None]
  - Depression [None]
  - Social avoidant behaviour [None]

NARRATIVE: CASE EVENT DATE: 20180902
